FAERS Safety Report 8883398 (Version 2)
Quarter: 2012Q4

REPORT INFORMATION
  Report Type: Report from Study
  Country: CA (occurrence: CA)
  Receive Date: 20121102
  Receipt Date: 20121115
  Transmission Date: 20130627
  Serious: Yes (Death)
  Sender: FDA-Public Use
  Company Number: CA-ABBOTT-12P-028-1002545-00

PATIENT
  Sex: Male

DRUGS (1)
  1. HUMIRA PEN [Suspect]
     Indication: CROHN^S DISEASE
     Route: 058
     Dates: start: 20120622

REACTIONS (4)
  - Hepatic cirrhosis [Fatal]
  - Nodular regenerative hyperplasia [Fatal]
  - Portal hypertension [Fatal]
  - Oesophageal varices haemorrhage [Unknown]
